FAERS Safety Report 14909268 (Version 5)
Quarter: 2018Q3

REPORT INFORMATION
  Report Type: Spontaneous
  Country: CA (occurrence: CA)
  Receive Date: 20180517
  Receipt Date: 20180716
  Transmission Date: 20181010
  Serious: Yes (Hospitalization, Other)
  Sender: FDA-Public Use
  Company Number: CA-CELLTRION INC.-2018CA019007

PATIENT

DRUGS (19)
  1. INFLECTRA [Suspect]
     Active Substance: INFLIXIMAB-DYYB
     Dosage: 400 MG, CYCLIC (EVERY 0, 2,6 WEEKS, THEN EVERY 8 WEEKS
     Route: 042
     Dates: start: 20180404, end: 2018
  2. HYDROXYCHLOROQUINE [Concomitant]
     Active Substance: HYDROXYCHLOROQUINE
     Dosage: UNK
     Dates: start: 201605
  3. COLCHICINE. [Concomitant]
     Active Substance: COLCHICINE
     Dosage: UNK
  4. ZOLOFT [Concomitant]
     Active Substance: SERTRALINE HYDROCHLORIDE
     Dosage: UNK
  5. INFLECTRA [Suspect]
     Active Substance: INFLIXIMAB-DYYB
     Dosage: 400 MG, CYCLIC (EVERY 0, 2,6 WEEKS, THEN EVERY 8 WEEKS
     Route: 042
     Dates: start: 20180511
  6. LEFLUNOMIDE. [Concomitant]
     Active Substance: LEFLUNOMIDE
     Dosage: UNK
     Dates: start: 201703
  7. PANTOLOC                           /01263201/ [Concomitant]
     Active Substance: PANTOPRAZOLE SODIUM
     Dosage: UNK
  8. INFLECTRA [Suspect]
     Active Substance: INFLIXIMAB-DYYB
     Dosage: 400 MG, CYCLIC (EVERY 0, 2,6 WEEKS, THEN EVERY 8 WEEKS
     Route: 042
     Dates: start: 20180320
  9. DILAUDID [Concomitant]
     Active Substance: HYDROMORPHONE HYDROCHLORIDE
     Dosage: UNK
  10. INFLECTRA [Suspect]
     Active Substance: INFLIXIMAB-DYYB
     Indication: RHEUMATOID ARTHRITIS
     Dosage: 400 MG, CYCLIC (EVERY 0, 2,6 WEEKS, THEN EVERY 8 WEEKS
     Route: 042
     Dates: start: 20180309
  11. INFLECTRA [Suspect]
     Active Substance: INFLIXIMAB-DYYB
     Dosage: 400 MG, CYCLIC (EVERY 0, 2,6 WEEKS, THEN EVERY 8 WEEKS
     Route: 042
     Dates: end: 2018
  12. IBUPROFEN. [Concomitant]
     Active Substance: IBUPROFEN
     Dosage: UNK
  13. FOLIC ACID. [Concomitant]
     Active Substance: FOLIC ACID
     Dosage: UNK
  14. INFLECTRA [Suspect]
     Active Substance: INFLIXIMAB-DYYB
     Dosage: 400 MG, CYCLIC (EVERY 0, 2,6 WEEKS, THEN EVERY 8 WEEKS
     Route: 042
     Dates: start: 20180706
  15. RIVOTRIL [Concomitant]
     Active Substance: CLONAZEPAM
     Dosage: UNK
  16. IBUPROFEN. [Concomitant]
     Active Substance: IBUPROFEN
     Dosage: UNK
  17. MAGNESIUM [Concomitant]
     Active Substance: MAGNESIUM
     Dosage: UNK
  18. MELATONIN [Concomitant]
     Active Substance: MELATONIN
     Dosage: UNK
  19. ATARAX [Concomitant]
     Active Substance: HYDROXYZINE HYDROCHLORIDE
     Dosage: UNK

REACTIONS (24)
  - Feeling abnormal [Unknown]
  - Condition aggravated [Unknown]
  - Dizziness [Recovering/Resolving]
  - Malaise [Unknown]
  - Cellulitis [Unknown]
  - Pyelonephritis [Unknown]
  - Heart rate irregular [Unknown]
  - Sleep disorder [Unknown]
  - Oral fungal infection [Not Recovered/Not Resolved]
  - Cellulitis [Recovered/Resolved]
  - Condition aggravated [Unknown]
  - Decreased appetite [Not Recovered/Not Resolved]
  - Fatigue [Not Recovered/Not Resolved]
  - Amnesia [Unknown]
  - Dizziness [Recovered/Resolved]
  - Stress [Unknown]
  - Dysgeusia [Unknown]
  - Oropharyngeal pain [Not Recovered/Not Resolved]
  - Blood pressure fluctuation [Unknown]
  - Gout [Unknown]
  - Prescribed overdose [Unknown]
  - Pain in extremity [Not Recovered/Not Resolved]
  - Dysphagia [Not Recovered/Not Resolved]
  - Gait disturbance [Unknown]

NARRATIVE: CASE EVENT DATE: 20180309
